FAERS Safety Report 14721059 (Version 3)
Quarter: 2018Q3

REPORT INFORMATION
  Report Type: Spontaneous
  Country: US (occurrence: US)
  Receive Date: 20180405
  Receipt Date: 20180719
  Transmission Date: 20181010
  Serious: Yes (Congenital Anomaly, Other)
  Sender: FDA-Public Use
  Company Number: PHEH2018US013030

PATIENT
  Sex: Male

DRUGS (2)
  1. ZOFRAN [Suspect]
     Active Substance: ONDANSETRON HYDROCHLORIDE
     Indication: FOETAL EXPOSURE DURING PREGNANCY
     Dosage: MOTHER^S DOSE: 4 MG, Q8H, PRN
     Route: 064
  2. ZOFRAN [Suspect]
     Active Substance: ONDANSETRON HYDROCHLORIDE
     Indication: FOETAL EXPOSURE DURING PREGNANCY
     Route: 064

REACTIONS (26)
  - Bradycardia neonatal [Unknown]
  - Foetal exposure during pregnancy [Unknown]
  - Nasal congestion [Unknown]
  - Synostosis [Unknown]
  - Eye contusion [Unknown]
  - Otitis media [Unknown]
  - Eye movement disorder [Unknown]
  - Scaphocephaly [Unknown]
  - Headache [Unknown]
  - Arthropod bite [Unknown]
  - Injury [Unknown]
  - Ear infection [Unknown]
  - Congenital choroid plexus cyst [Unknown]
  - Enuresis [Unknown]
  - Photophobia [Unknown]
  - Petechiae [Unknown]
  - Craniosynostosis [Unknown]
  - Seizure [Unknown]
  - Eustachian tube dysfunction [Unknown]
  - Adenoidal hypertrophy [Unknown]
  - Hypertrophic scar [Unknown]
  - Breathing-related sleep disorder [Unknown]
  - Head injury [Unknown]
  - Hypermetropia [Unknown]
  - Strabismus [Unknown]
  - Cerebral cyst [Unknown]
